FAERS Safety Report 8432482-2 (Version None)
Quarter: 2012Q2

REPORT INFORMATION
  Report Type: 
  Country: None (occurrence: None)
  Receive Date: 20120613
  Receipt Date: 20120606
  Transmission Date: 20120825
  Serious: Yes (Hospitalization, Other)
  Sender: FDA-Public Use
  Company Number: US-UCBSA-056523

PATIENT
  Age: 27 Year
  Sex: Male
  Weight: 58.5 kg

DRUGS (13)
  1. LUTEIN [Concomitant]
     Dosage: 20 MG
  2. CO-Q10 [Concomitant]
     Dosage: 100 MG
  3. NAPROXEN (ALEVE) [Concomitant]
  4. VIMPAT [Suspect]
     Indication: CONVULSION
     Dosage: DOSE UNKNOWN
     Dates: start: 20111213
  5. PLAVIX [Concomitant]
     Dosage: 75 MG
  6. ASPIRIN [Concomitant]
     Dosage: 81 MG
  7. ASPIRIN [Concomitant]
     Dosage: 162 MG
  8. SIMVASTATIN [Concomitant]
     Dosage: 40 MG
  9. EFFEXOR XR [Concomitant]
     Dosage: 75 MG
  10. MAXI VISION [Concomitant]
  11. ACETAMINOPHEN [Concomitant]
  12. KEPPRA [Suspect]
  13. MULTI-VITAMIN [Concomitant]

REACTIONS (5)
  - CONFUSIONAL STATE [None]
  - HEAD INJURY [None]
  - MELAS SYNDROME [None]
  - TREATMENT NONCOMPLIANCE [None]
  - DISORIENTATION [None]
